FAERS Safety Report 9881025 (Version 2)
Quarter: 2014Q1

REPORT INFORMATION
  Report Type: Spontaneous
  Country: US (occurrence: US)
  Receive Date: 20140207
  Receipt Date: 20140312
  Transmission Date: 20141002
  Serious: Yes (Other)
  Sender: FDA-Public Use
  Company Number: US-CELGENEUS-163-21880-14015216

PATIENT
  Age: 70 Year
  Sex: Female

DRUGS (9)
  1. REVLIMID [Suspect]
     Indication: PLASMA CELL MYELOMA
     Dosage: 25 MILLIGRAM
     Route: 048
     Dates: start: 20130926
  2. REVLIMID [Suspect]
     Dosage: 25 MILLIGRAM
     Route: 048
     Dates: start: 20131012
  3. REVLIMID [Suspect]
     Dosage: 25 MILLIGRAM
     Route: 048
     Dates: start: 20140119, end: 20140218
  4. VELCADE [Concomitant]
     Indication: PLASMA CELL MYELOMA
     Route: 041
     Dates: start: 20130912, end: 20140115
  5. COUMADIN [Concomitant]
     Indication: ATRIAL FIBRILLATION
     Dosage: 2 MILLIGRAM
     Route: 065
     Dates: end: 20140115
  6. AMLODIPINE [Concomitant]
     Indication: HYPERTENSION
     Dosage: 5 MILLIGRAM
     Route: 065
     Dates: end: 20140115
  7. ASA [Concomitant]
     Indication: HYPERTENSION
     Dosage: 81 MILLIGRAM
     Route: 065
     Dates: end: 20140115
  8. LISINOPRIL [Concomitant]
     Indication: HYPERTENSION
     Dosage: 10 MILLIGRAM
     Route: 065
     Dates: end: 20140115
  9. DIGOXIN [Concomitant]
     Indication: HYPERTENSION
     Dosage: .25 MILLIGRAM
     Route: 065
     Dates: end: 20140115

REACTIONS (1)
  - Breast cancer metastatic [Recovering/Resolving]
